FAERS Safety Report 9514638 (Version 1)
Quarter: 2013Q3

REPORT INFORMATION
  Report Type: Spontaneous
  Country: CO (occurrence: None)
  Receive Date: 20130906
  Receipt Date: 20130906
  Transmission Date: 20140515
  Serious: Yes (Hospitalization)
  Sender: FDA-Public Use
  Company Number: VAL_02708_2013

PATIENT
  Age: 61 Year
  Sex: Male
  Weight: 76.2 kg

DRUGS (8)
  1. METOPROLOL (METOPROLOL-METOPROLOL TARTRATE) [Suspect]
     Indication: HYPERTENSION
     Route: 048
     Dates: start: 20101117, end: 20101203
  2. ALISKIREN VS PLACEBO-PLACEBO COMP-PLA+ [Suspect]
     Indication: CARDIOVASCULAR DISORDER
     Dosage: (DF)
     Route: 048
     Dates: start: 20090326, end: 20090427
  3. AMLODIPINE [Suspect]
     Indication: HYPERTENSION
     Dosage: (DF)
     Route: 048
     Dates: start: 20101111, end: 20101203
  4. ASPIRIN [Concomitant]
  5. CARVEDILOL [Concomitant]
  6. ENALAPRIL [Concomitant]
  7. LOVASTATIN [Concomitant]
  8. VALSARTAN [Concomitant]

REACTIONS (2)
  - Bradycardia [None]
  - Angina pectoris [None]
